FAERS Safety Report 9203378 (Version 1)
Quarter: 2013Q2

REPORT INFORMATION
  Report Type: Spontaneous
  Country: GB (occurrence: GB)
  Receive Date: 20130402
  Receipt Date: 20130402
  Transmission Date: 20140414
  Serious: Yes (Other)
  Sender: FDA-Public Use
  Company Number: GB-MPIJNJ-2013-02254

PATIENT
  Sex: 0

DRUGS (2)
  1. VELCADE [Suspect]
     Indication: PLASMA CELL MYELOMA
     Dosage: UNK, CYCLIC
     Route: 065
  2. CORTICOSTEROIDS [Concomitant]

REACTIONS (4)
  - Viral infection [Unknown]
  - Varicella [Unknown]
  - Lower respiratory tract infection [Unknown]
  - Fatigue [Unknown]
